FAERS Safety Report 4402155-1 (Version None)
Quarter: 2004Q3

REPORT INFORMATION
  Report Type: 
  Country: None (occurrence: None)
  Receive Date: 20040715
  Receipt Date: 20040706
  Transmission Date: 20050211
  Serious: Yes (Hospitalization)
  Sender: FDA-Public Use
  Company Number: LTI2004A00156

PATIENT
  Age: 66 Year
  Sex: Female

DRUGS (5)
  1. ACTOS [Suspect]
     Indication: DIABETES MELLITUS NON-INSULIN-DEPENDENT
     Dosage: 30 MG (30 MG, 1 IN 1 D), ORAL
     Route: 048
     Dates: start: 20040330, end: 20040525
  2. GLUCOPHAGE [Concomitant]
  3. AMLODIPINE BESYLATE [Concomitant]
  4. CAPTOPRIL [Concomitant]
  5. ASPIRIN [Concomitant]

REACTIONS (8)
  - ANAEMIA [None]
  - ANGINA PECTORIS [None]
  - ARTERIOSPASM CORONARY [None]
  - DYSLIPIDAEMIA [None]
  - FEELING COLD [None]
  - HAEMODILUTION [None]
  - PALLOR [None]
  - STRESS SYMPTOMS [None]
